FAERS Safety Report 23826561 (Version 2)
Quarter: 2024Q2

REPORT INFORMATION
  Report Type: Spontaneous
  Country: US (occurrence: US)
  Receive Date: 20240507
  Receipt Date: 20240517
  Transmission Date: 20240715
  Serious: No
  Sender: FDA-Public Use
  Company Number: US-GILEAD-2024-0671734

PATIENT
  Age: 60 Year
  Sex: Male
  Weight: 101.59 kg

DRUGS (4)
  1. YESCARTA [Suspect]
     Active Substance: AXICABTAGENE CILOLEUCEL
     Indication: Lymphoma
     Dosage: UNK
     Route: 042
     Dates: start: 20240430, end: 20240430
  2. DEXAMETHASONE [Concomitant]
     Active Substance: DEXAMETHASONE
  3. IBUPROFEN [Concomitant]
     Active Substance: IBUPROFEN
  4. DIPHENHYDRAMINE [Concomitant]
     Active Substance: DIPHENHYDRAMINE

REACTIONS (10)
  - Infusion related reaction [Recovered/Resolved]
  - Nausea [Unknown]
  - Headache [Unknown]
  - Burning sensation [Unknown]
  - Flushing [Unknown]
  - Pruritus [Unknown]
  - Tinnitus [Unknown]
  - Blood pressure increased [Recovered/Resolved]
  - Dizziness [Unknown]
  - Respiratory rate increased [Unknown]

NARRATIVE: CASE EVENT DATE: 20240430
